FAERS Safety Report 21553979 (Version 1)
Quarter: 2022Q4

REPORT INFORMATION
  Report Type: Spontaneous
  Country: NL (occurrence: NL)
  Receive Date: 20221104
  Receipt Date: 20221104
  Transmission Date: 20230113
  Serious: Yes (Hospitalization)
  Sender: FDA-Public Use
  Company Number: None

PATIENT
  Sex: Female
  Weight: 61 kg

DRUGS (16)
  1. FUROSEMIDE [Suspect]
     Active Substance: FUROSEMIDE
     Indication: Oedema
     Dosage: 1 OF 1 TABLET, 40MG / BRAND NAME NOT SPECIFIED, UNIT DOSE AND STRENGTH : 40 MG, FREQUENCY TIME : 1 D
     Route: 065
     Dates: start: 20220419, end: 20220621
  2. LISINOPRIL [Suspect]
     Active Substance: LISINOPRIL
     Indication: Myocardial infarction
     Dosage: 1 DD 1, STRENGTH : 2.5MG / BRAND NAME NOT SPECIFIED, FREQUENCY TIME : 1 DAY, DURATION : 672 DAYS
     Route: 065
     Dates: start: 20200819, end: 20220622
  3. HYDROXOCOBALAMINE HCL [Concomitant]
     Indication: Product used for unknown indication
     Dosage: INJECTION FLUID, 500 UG/ML (MICROGRAMS PER MILLILITER), INJVLST 500UG/ML / BRAND NAME NOT SPECIFIED,
  4. CALCIUM CARBONATE\CHOLECALCIFEROL [Concomitant]
     Active Substance: CALCIUM CARBONATE\CHOLECALCIFEROL
     Indication: Product used for unknown indication
     Dosage: 2.5 G (GRAMS)/800 UNITS, STRENGTH : 1000MG/800IE, 2.5 G/800IE, THERAPY START DATE : ASKU , THERAPY E
  5. ATORVASTATIN [Concomitant]
     Active Substance: ATORVASTATIN
     Indication: Product used for unknown indication
     Dosage: 40 MG (MILLIGRAM), STRENGTH : 40MG / BRAND NAME NOT SPECIFIED, THERAPY START DATE : ASKU , THERAPY
  6. INSULIN DEGLUDEC [Concomitant]
     Active Substance: INSULIN DEGLUDEC
     Indication: Product used for unknown indication
     Dosage: 100 UNITS/ML (UNITS PER MILLILITER), 100E,100E/ML INJVLST / BRAND NAME NOT SPECIFIED, THERAPY START
  7. ISOSORBIDE MONONITRATE [Concomitant]
     Active Substance: ISOSORBIDE MONONITRATE
     Indication: Product used for unknown indication
     Dosage: ISOSORBIDE MONONITRATE TABLET MGA 120MG / BRAND NAME NOT SPECIFIED, THERAPY START DATE : ASKU , THER
  8. FAMOTIDINE [Concomitant]
     Active Substance: FAMOTIDINE
     Indication: Product used for unknown indication
     Dosage: 20 MG (MILLIGRAM),STRENGTH :  20MG / BRAND NAME NOT SPECIFIED, THERAPY START DATE : ASKU , THERAPY
  9. CHOLECALCIFEROL [Concomitant]
     Active Substance: CHOLECALCIFEROL
     Indication: Product used for unknown indication
     Dosage: 5600 UNITS, STRENGTH : 5600IE / BRAND NAME NOT SPECIFIED, THERAPY START DATE : ASKU , THERAPY END DA
  10. INSULIN ASPART [Concomitant]
     Active Substance: INSULIN ASPART
     Indication: Product used for unknown indication
     Dosage: INJECTION FLUID, 100 UNITS/ML (UNITS PER MILLILITER),INJVLST 100E/ML / BRAND NAME NOT SPECIFIED, THE
  11. OMEPRAZOLE [Concomitant]
     Active Substance: OMEPRAZOLE
     Indication: Product used for unknown indication
     Dosage: 20 MG (MILLIGRAM), OMEPRAZOL CAPSULE MSR 20MG / BRAND NAME NOT SPECIFIED, THERAPY START DATE : ASKU
  12. DAPAGLIFLOZIN [Concomitant]
     Active Substance: DAPAGLIFLOZIN
     Indication: Product used for unknown indication
     Dosage: 10 MG (MILLIGRAM),  STRENGTH : 10MG / BRAND NAME NOT SPECIFIED
  13. TICAGRELOR [Concomitant]
     Active Substance: TICAGRELOR
     Indication: Product used for unknown indication
     Dosage: 90 MG (MILLIGRAMS), MELTING TABLET 90MG / BRAND NAME NOT SPECIFIED, THERAPY START DATE : ASKU , THER
  14. METOPROLOL SUCCINATE [Concomitant]
     Active Substance: METOPROLOL SUCCINATE
     Indication: Product used for unknown indication
     Dosage: 50 MG (MILLIGRAMS), METOPROLOL TABLET MGA 50MG (SUCCINATE) / BRAND NAME NOT SPECIFIED, THERAPY START
  15. ASPIRIN [Concomitant]
     Active Substance: ASPIRIN
     Indication: Product used for unknown indication
     Dosage: 80 MG (MILLIGRAM), STRENGTH : 80MG / BRAND NAME NOT SPECIFIED, THERAPY START DATE : ASKU , THERAPY E
  16. ISOSORBIDE DINITRATE [Concomitant]
     Active Substance: ISOSORBIDE DINITRATE
     Indication: Product used for unknown indication
     Dosage: 5 MG (MILLIGRAM),  STRENGTH : 5MG / BRAND NAME NOT SPECIFIED, THERAPY START DATE : ASKU , THERAPY EN

REACTIONS (2)
  - Acute kidney injury [Recovering/Resolving]
  - Hypokalaemia [Recovering/Resolving]
